FAERS Safety Report 5321194-X (Version None)
Quarter: 2007Q1

REPORT INFORMATION
  Report Type: 
  Country: None (occurrence: None)
  Receive Date: 20070215
  Receipt Date: 20061117
  Transmission Date: 20070707
  Serious: Yes (Other)
  Sender: FDA-Public Use
  Company Number: 2006BH014444

PATIENT
  Age: 31 Year
  Sex: Female
  Weight: 77.3 kg

DRUGS (1)
  1. EXTRANEAL [Suspect]
     Indication: RENAL FAILURE CHRONIC
     Dosage: 2000 ML;IP

REACTIONS (1)
  - PERITONITIS BACTERIAL [None]
